FAERS Safety Report 9466010 (Version 1)
Quarter: 2013Q3

REPORT INFORMATION
  Report Type: Spontaneous
  Country: US (occurrence: None)
  Receive Date: 20130816
  Receipt Date: 20130816
  Transmission Date: 20140515
  Serious: Yes (Death)
  Sender: FDA-Public Use
  Company Number: None

PATIENT
  Age: 46 Year
  Sex: Female
  Weight: 58.06 kg

DRUGS (13)
  1. NERATINIB [Suspect]
     Indication: HER-2 POSITIVE BREAST CANCER
     Dosage: 240 MG / PO/ DAILY
     Route: 048
     Dates: start: 20130511, end: 20130708
  2. NERATINIB [Suspect]
     Indication: BREAST CANCER METASTATIC
     Dosage: 240 MG / PO/ DAILY
     Route: 048
     Dates: start: 20130511, end: 20130708
  3. LIOTHYRONINE [Concomitant]
  4. LEVOTHYROXINE SODIUM [Concomitant]
  5. HYDROCHLOROTHIAZIDE [Concomitant]
  6. LISINOPRIL [Concomitant]
  7. POTASSIUM [Concomitant]
  8. DESVENLAFAXINE [Concomitant]
  9. ALBUTEROL [Concomitant]
  10. FLUTICASONE PROPIONATE [Concomitant]
  11. LOPERAMIDE [Concomitant]
  12. MEGESTROL ACETATE [Concomitant]
  13. MOMETASONE FUROATE MONOHYDRATE [Concomitant]

REACTIONS (6)
  - Dyspnoea [None]
  - Disease progression [None]
  - Cough [None]
  - Breast cancer metastatic [None]
  - Lymphadenopathy [None]
  - Liver disorder [None]
